FAERS Safety Report 12256679 (Version 2)
Quarter: 2016Q2

REPORT INFORMATION
  Report Type: Spontaneous
  Country: SE (occurrence: SE)
  Receive Date: 20160412
  Receipt Date: 20160510
  Transmission Date: 20160815
  Serious: Yes (Other)
  Sender: FDA-Public Use
  Company Number: SE-AEGERION PHARMACEUTICALS INC-AEGR002498

PATIENT

DRUGS (2)
  1. LOJUXTA [Suspect]
     Active Substance: LOMITAPIDE MESYLATE
     Indication: PRODUCT USED FOR UNKNOWN INDICATION
     Dosage: 20 MG AND 30 MG ON EVERY OTHER DAY
     Dates: end: 2016
  2. LOJUXTA [Suspect]
     Active Substance: LOMITAPIDE MESYLATE
     Dosage: 20 MG, QD
     Dates: start: 2016

REACTIONS (3)
  - Diarrhoea [Recovered/Resolved]
  - Product used for unknown indication [Unknown]
  - Urosepsis [Recovered/Resolved]
